FAERS Safety Report 9018059 (Version 1)
Quarter: 2013Q1

REPORT INFORMATION
  Report Type: Spontaneous
  Country: US (occurrence: None)
  Receive Date: 20130110
  Receipt Date: 20130110
  Transmission Date: 20140127
  Serious: Yes (Other)
  Sender: FDA-Public Use
  Company Number: None

PATIENT
  Sex: Female
  Weight: 58.97 kg

DRUGS (2)
  1. ESTRADIOL\NORETHINDRONE ACETATE [Suspect]
     Indication: HOT FLUSH
     Dosage: 1 TAB DAILY MOUTH
     Route: 048
     Dates: start: 20120901, end: 20121018
  2. ESTRADIOL\NORETHINDRONE ACETATE [Suspect]
     Indication: VULVOVAGINAL DRYNESS
     Dosage: 1 TAB DAILY MOUTH
     Route: 048
     Dates: start: 20120901, end: 20121018

REACTIONS (4)
  - Product substitution issue [None]
  - Hot flush [None]
  - Headache [None]
  - Urinary tract infection [None]
